FAERS Safety Report 7967121-8 (Version None)
Quarter: 2011Q4

REPORT INFORMATION
  Report Type: 
  Country: None (occurrence: None)
  Receive Date: 20111209
  Receipt Date: 20111013
  Transmission Date: 20120403
  Serious: Yes (Hospitalization)
  Sender: FDA-Public Use
  Company Number: US-BAYER-2011-023771

PATIENT
  Age: 27 Year
  Sex: Female
  Weight: 77 kg

DRUGS (7)
  1. ANTIBIOTICS [Concomitant]
  2. TOPROL-XL [Concomitant]
  3. ASACOL [Concomitant]
     Indication: COLITIS
  4. FIORICET [Concomitant]
     Dosage: UNK
     Dates: start: 20020101
  5. ZANTAC [Concomitant]
  6. YASMIN [Suspect]
     Dosage: UNK
     Route: 048
     Dates: start: 20010101, end: 20020101
  7. LIPITOR [Concomitant]

REACTIONS (3)
  - ABDOMINAL PAIN UPPER [None]
  - CHOLECYSTITIS CHRONIC [None]
  - GALLBLADDER DISORDER [None]
